FAERS Safety Report 5844403-7 (Version None)
Quarter: 2008Q3

REPORT INFORMATION
  Report Type: 
  Country: None (occurrence: None)
  Receive Date: 20080813
  Receipt Date: 20080805
  Transmission Date: 20090109
  Serious: Yes (Hospitalization, Other)
  Sender: FDA-Public Use
  Company Number: US-MERCK-0805USA00733

PATIENT
  Age: 59 Year
  Sex: Female

DRUGS (3)
  1. FOSAMAX [Suspect]
     Indication: OSTEOPOROSIS
     Route: 048
     Dates: start: 20020101, end: 20070101
  2. PAXIL [Concomitant]
     Indication: ANXIETY
     Route: 065
     Dates: start: 20010101
  3. LOSARTAN POTASSIUM [Concomitant]
     Indication: BLOOD PRESSURE
     Route: 065
     Dates: start: 20000101

REACTIONS (2)
  - INTESTINAL FUNCTIONAL DISORDER [None]
  - OSTEONECROSIS [None]
